FAERS Safety Report 15325259 (Version 12)
Quarter: 2024Q2

REPORT INFORMATION
  Report Type: Report from Study
  Country: DE (occurrence: DE)
  Receive Date: 20180828
  Receipt Date: 20240410
  Transmission Date: 20240716
  Serious: Yes (Hospitalization, Other)
  Sender: FDA-Public Use
  Company Number: DE-ABBVIE-18K-062-2223489-00

PATIENT
  Age: 48 Year
  Sex: Male

DRUGS (12)
  1. HUMIRA [Suspect]
     Active Substance: ADALIMUMAB
     Indication: Rheumatoid arthritis
     Route: 058
     Dates: start: 20170905, end: 20171213
  2. HUMIRA [Suspect]
     Active Substance: ADALIMUMAB
     Indication: Spondyloarthropathy
     Route: 058
     Dates: start: 20171220
  3. SIMPONI [Suspect]
     Active Substance: GOLIMUMAB
     Indication: Spondyloarthropathy
     Route: 058
     Dates: start: 20171220, end: 20230309
  4. SIMPONI [Suspect]
     Active Substance: GOLIMUMAB
     Indication: Spondyloarthropathy
     Route: 058
     Dates: start: 20230310
  5. CELECOXIB [Concomitant]
     Active Substance: CELECOXIB
     Indication: Axial spondyloarthritis
     Dosage: 2800 MG/WEEKNSAR (NON-STEROIDAL ANTI-RHEUMATIC)
     Dates: start: 20171124, end: 20180101
  6. CELECOXIB [Concomitant]
     Active Substance: CELECOXIB
     Indication: Axial spondyloarthritis
     Dosage: 2800 MG/ A WEEK
     Dates: start: 20180716, end: 20181215
  7. CELECOXIB [Concomitant]
     Active Substance: CELECOXIB
     Indication: Axial spondyloarthritis
     Dosage: 0.14/WEEKS?1400 MG/WEEK
     Dates: start: 20190122, end: 20211225
  8. CELECOXIB [Concomitant]
     Active Substance: CELECOXIB
     Indication: Axial spondyloarthritis
     Dosage: 7 DAYS PER WEEK, LAST ADMIN DATE-2022
     Dates: start: 20220509
  9. CELECOXIB [Concomitant]
     Active Substance: CELECOXIB
     Indication: Axial spondyloarthritis
     Dosage: 4 DAYS PER WEEK
     Dates: start: 20221015
  10. ACEMETACIN [Concomitant]
     Active Substance: ACEMETACIN
     Indication: Product used for unknown indication
     Dates: start: 20170828
  11. ETORICOXIB [Concomitant]
     Active Substance: ETORICOXIB
     Indication: Product used for unknown indication
     Dosage: FREQUENCY 0.14 MG?840 MG PER DAY=840/7=120 MG ONCE
     Dates: start: 20181207, end: 20190122
  12. METHOTREXATE [Suspect]
     Active Substance: METHOTREXATE
     Indication: Product used for unknown indication
     Dosage: 7.50 MG/WEEK
     Route: 065
     Dates: start: 20220715, end: 20221231

REACTIONS (32)
  - Restless legs syndrome [Recovered/Resolved]
  - Chronic idiopathic pain syndrome [Recovered/Resolved]
  - Chronic idiopathic pain syndrome [Recovered/Resolved]
  - Chronic gastritis [Not Recovered/Not Resolved]
  - Axial spondyloarthritis [Unknown]
  - Gastrointestinal infection [Not Recovered/Not Resolved]
  - Oral herpes [Unknown]
  - Influenza like illness [Unknown]
  - Colorectal adenoma [Recovered/Resolved]
  - Vertigo [Unknown]
  - Asthma [Unknown]
  - Diarrhoea [Unknown]
  - Depression [Recovered/Resolved]
  - Nasopharyngitis [Unknown]
  - Fall [Unknown]
  - Iridocyclitis [Unknown]
  - Intervertebral disc protrusion [Not Recovered/Not Resolved]
  - Lymphadenopathy mediastinal [Unknown]
  - Sarcoidosis [Unknown]
  - Abdominal discomfort [Unknown]
  - Arteriosclerosis coronary artery [Unknown]
  - Anaemia [Unknown]
  - Chronic obstructive pulmonary disease [Unknown]
  - Emphysema [Unknown]
  - Bronchial hyperreactivity [Unknown]
  - Hypertension [Unknown]
  - Hyperhidrosis [Unknown]
  - Nausea [Unknown]
  - Open angle glaucoma [Unknown]
  - Aortic dilatation [Unknown]
  - Diarrhoea [Recovered/Resolved]
  - Bursitis [Recovered/Resolved]

NARRATIVE: CASE EVENT DATE: 20171225
